FAERS Safety Report 14992699 (Version 1)
Quarter: 2018Q2

REPORT INFORMATION
  Report Type: Spontaneous
  Country: DE (occurrence: DE)
  Receive Date: 20180609
  Receipt Date: 20180609
  Transmission Date: 20180711
  Serious: Yes (Life-Threatening, Hospitalization)
  Sender: FDA-Public Use
  Company Number: DE-TEVA-2018-DE-902931

PATIENT
  Age: 78 Year
  Sex: Female
  Weight: 65.5 kg

DRUGS (16)
  1. SIMVASTATIN. [Suspect]
     Active Substance: SIMVASTATIN
     Route: 048
  2. CALCIUM CARBONATE. [Concomitant]
     Active Substance: CALCIUM CARBONATE
     Route: 048
  3. L-THYROXIN [Concomitant]
     Active Substance: LEVOTHYROXINE SODIUM
     Route: 048
  4. VIGANTOLETTEN [Concomitant]
     Active Substance: CHOLECALCIFEROL
     Dosage: 1000 IE, 2-0-0,II
     Route: 048
  5. CITALOPRAM [Concomitant]
     Active Substance: CITALOPRAM HYDROBROMIDE
     Route: 048
  6. MOLSIDOMINE [Concomitant]
     Active Substance: MOLSIDOMINE
     Dosage: 1/2-0-1/2,
     Route: 048
  7. PREDNISOLONE. [Concomitant]
     Active Substance: PREDNISOLONE
     Route: 048
  8. AMLODIPINE [Concomitant]
     Active Substance: AMLODIPINE BESYLATE
     Route: 048
  9. PANTOPRAZOL [Concomitant]
     Active Substance: PANTOPRAZOLE SODIUM
     Route: 048
  10. TILIDINE [Concomitant]
     Active Substance: TILIDINE
     Dosage: 50|4 MG, B.B.,
     Route: 048
  11. VESICARE [Concomitant]
     Active Substance: SOLIFENACIN SUCCINATE
     Route: 048
  12. TEBONIN [Concomitant]
     Active Substance: GINKGO
     Route: 048
  13. ALENDRONIC ACID [Concomitant]
     Active Substance: ALENDRONIC ACID
     Dosage: , 1X/W?CHENTL.
     Route: 065
  14. TORASEMIDE [Suspect]
     Active Substance: TORSEMIDE
     Dosage: , 1 1/2-1 1/2-0,
     Route: 048
  15. IBUPROFEN. [Concomitant]
     Active Substance: IBUPROFEN
     Route: 048
  16. ANASTROZOL [Concomitant]
     Active Substance: ANASTROZOLE
     Route: 048

REACTIONS (3)
  - Dyspnoea [Unknown]
  - Drug prescribing error [Unknown]
  - Chest discomfort [Unknown]
